FAERS Safety Report 13538799 (Version 1)
Quarter: 2017Q2

REPORT INFORMATION
  Report Type: Spontaneous
  Country: US (occurrence: US)
  Receive Date: 20170511
  Receipt Date: 20170511
  Transmission Date: 20170830
  Serious: Yes (Hospitalization)
  Sender: FDA-Public Use
  Company Number: None

PATIENT
  Age: 53 Year
  Sex: Female
  Weight: 65.25 kg

DRUGS (2)
  1. METHYLPREDNISOLONE. [Suspect]
     Active Substance: METHYLPREDNISOLONE
     Indication: UPPER RESPIRATORY TRACT INFLAMMATION
     Dosage: 21 TABLET(S); ORAL; OTHER FREQUENCY:6-5-4-3-2-1 PER DA?
     Route: 048
     Dates: start: 20170506, end: 20170507
  2. METHYLPREDNISOLONE. [Suspect]
     Active Substance: METHYLPREDNISOLONE
     Indication: DYSPHONIA
     Dosage: 21 TABLET(S); ORAL; OTHER FREQUENCY:6-5-4-3-2-1 PER DA?
     Route: 048
     Dates: start: 20170506, end: 20170507

REACTIONS (9)
  - Headache [None]
  - Somnolence [None]
  - Vomiting [None]
  - Blood pressure increased [None]
  - Movement disorder [None]
  - Chest discomfort [None]
  - Migraine [None]
  - Fatigue [None]
  - Drug ineffective [None]

NARRATIVE: CASE EVENT DATE: 20170508
